FAERS Safety Report 5867864-6 (Version None)
Quarter: 2008Q3

REPORT INFORMATION
  Report Type: 
  Country: None (occurrence: None)
  Receive Date: 20080902
  Receipt Date: 20080826
  Transmission Date: 20090109
  Serious: Yes (Hospitalization)
  Sender: FDA-Public Use
  Company Number: CN-ASTRAZENECA-2008AP06353

PATIENT
  Age: 54 Year
  Sex: Female

DRUGS (2)
  1. OMEPRAZOLE [Suspect]
     Indication: GASTRIC ULCER HAEMORRHAGE
     Route: 042
     Dates: start: 20071214, end: 20071215
  2. NEXIUM [Suspect]
     Route: 048
     Dates: start: 20071215

REACTIONS (3)
  - BRAIN STEM INFARCTION [None]
  - DYSKINESIA [None]
  - MENTAL DISORDER [None]
